FAERS Safety Report 8607925-1 (Version None)
Quarter: 2012Q3

REPORT INFORMATION
  Report Type: 
  Country: None (occurrence: None)
  Receive Date: 20120821
  Receipt Date: 20120629
  Transmission Date: 20120928
  Serious: No
  Sender: FDA-Public Use
  Company Number: US-MYLANLABS-2012S1013370

PATIENT
  Sex: Female

DRUGS (2)
  1. NITROFURANTOIN [Suspect]
     Route: 048
  2. MUCINEX [Concomitant]

REACTIONS (3)
  - RASH [None]
  - SWELLING FACE [None]
  - LIP SWELLING [None]
